FAERS Safety Report 6530008-1 (Version None)
Quarter: 2010Q1

REPORT INFORMATION
  Report Type: 
  Country: None (occurrence: None)
  Receive Date: 20100107
  Receipt Date: 20091229
  Transmission Date: 20100710
  Serious: Yes (Other)
  Sender: FDA-Public Use
  Company Number: GXKR2009GB13886

PATIENT
  Sex: Female

DRUGS (1)
  1. DICLOFENAC (NGX) [Suspect]
     Route: 048

REACTIONS (3)
  - BILIARY CIRRHOSIS [None]
  - HEPATIC ENZYME INCREASED [None]
  - MALAISE [None]
